FAERS Safety Report 5816253-9 (Version None)
Quarter: 2008Q3

REPORT INFORMATION
  Report Type: 
  Country: None (occurrence: None)
  Receive Date: 20080721
  Receipt Date: 20080626
  Transmission Date: 20090109
  Serious: Yes (Hospitalization, Disabling)
  Sender: FDA-Public Use
  Company Number: PHHY2008JP04877

PATIENT
  Sex: Male
  Weight: 50 kg

DRUGS (11)
  1. VOLTAREN [Suspect]
     Indication: PAIN
     Dosage: 100MG
     Route: 054
     Dates: start: 20040713, end: 20040720
  2. TEGRETOL [Suspect]
     Indication: PAIN
     Dosage: UNK
     Route: 048
     Dates: start: 20040713, end: 20040720
  3. TEGRETOL [Suspect]
     Indication: ALLODYNIA
  4. TRYPTANOL [Suspect]
     Indication: PAIN
     Dosage: UNK
     Route: 048
     Dates: start: 20040613, end: 20040620
  5. LOXONIN [Concomitant]
     Indication: PAIN
     Dosage: UNK
     Route: 048
     Dates: start: 20040713, end: 20040720
  6. SELBEX [Concomitant]
     Indication: GASTRIC DISORDER
     Dosage: UNK
     Route: 048
     Dates: start: 20040713, end: 20040727
  7. SOL MEDROL [Concomitant]
     Indication: GASTRIC DISORDER
     Dosage: UNK
     Dates: start: 20040915, end: 20040917
  8. PREDONINE [Concomitant]
     Dosage: UNK
     Dates: start: 20040918, end: 20040920
  9. PREDONINE [Concomitant]
     Dosage: UNK
     Route: 048
     Dates: start: 20040921, end: 20040923
  10. PREDONINE [Concomitant]
     Dosage: UNK
     Route: 048
     Dates: start: 20040925, end: 20040927
  11. NEUROVITAN [Concomitant]
     Dosage: 3 TABLETS DAILY FOR 60 DAYS

REACTIONS (5)
  - BLINDNESS [None]
  - OPTIC NERVE DISORDER [None]
  - SURGERY [None]
  - VISION BLURRED [None]
  - VISUAL ACUITY REDUCED [None]
